FAERS Safety Report 16302866 (Version 2)
Quarter: 2019Q2

REPORT INFORMATION
  Report Type: Spontaneous
  Country: US (occurrence: US)
  Receive Date: 20190513
  Receipt Date: 20190613
  Transmission Date: 20190711
  Serious: Yes (Hospitalization, Other)
  Sender: FDA-Public Use
  Company Number: US-LUPIN PHARMACEUTICALS INC.-2019-02894

PATIENT
  Sex: Male

DRUGS (2)
  1. SILDENAFIL. [Suspect]
     Active Substance: SILDENAFIL
     Indication: PRODUCT USED FOR UNKNOWN INDICATION
     Dosage: UNK
     Route: 065
  2. SILDENAFIL. [Suspect]
     Active Substance: SILDENAFIL
     Dosage: 750 MILLIGRAM, SINGLE
     Route: 048

REACTIONS (5)
  - Night blindness [Recovering/Resolving]
  - Photophobia [Recovering/Resolving]
  - Intentional overdose [Unknown]
  - Retinal toxicity [Not Recovered/Not Resolved]
  - Visual field defect [Not Recovered/Not Resolved]
